FAERS Safety Report 4617964-3 (Version None)
Quarter: 2005Q1

REPORT INFORMATION
  Report Type: 
  Country: None (occurrence: None)
  Receive Date: 20050315
  Receipt Date: 20050303
  Transmission Date: 20050727
  Serious: Yes (Hospitalization)
  Sender: FDA-Public Use
  Company Number: 2005-00505

PATIENT
  Age: 31 Year
  Sex: Male

DRUGS (4)
  1. IMMUCYST (BCG - IT (CONNAUGHT)), AVENTIS PASTEUR LTD., LOT NOT EXP [Suspect]
     Indication: BLADDER CANCER
     Dosage: (81.0 MG); B.IN.
     Dates: start: 20040827, end: 20041022
  2. CARBAZOCHROME SODIUM SULFONATE [Concomitant]
  3. NAFTOPIDIL [Concomitant]
  4. LOXOPROFEN SODIUM [Concomitant]

REACTIONS (4)
  - BLADDER CONSTRICTION [None]
  - DYSURIA [None]
  - HAEMATURIA [None]
  - POLLAKIURIA [None]
